FAERS Safety Report 4287632-9 (Version None)
Quarter: 2004Q1

REPORT INFORMATION
  Report Type: 
  Country: None (occurrence: None)
  Receive Date: 20040205
  Receipt Date: 20040123
  Transmission Date: 20041129
  Serious: Yes (Hospitalization, Other)
  Sender: FDA-Public Use
  Company Number: USA040156884

PATIENT
  Age: 50 Year
  Sex: Female
  Weight: 61 kg

DRUGS (5)
  1. STRATTERA [Suspect]
     Indication: COGNITIVE DISORDER
     Dosage: 25 MG/DAY
     Dates: start: 20030501, end: 20040103
  2. STRATTERA [Suspect]
     Indication: MULTIPLE SCLEROSIS
     Dosage: 25 MG/DAY
     Dates: start: 20030501, end: 20040103
  3. BETASERON [Concomitant]
  4. PROVIGIL [Concomitant]
  5. ADDERALL 10 [Concomitant]

REACTIONS (3)
  - AORTIC VALVE INCOMPETENCE [None]
  - CONDITION AGGRAVATED [None]
  - PANCREATITIS [None]
